FAERS Safety Report 16138925 (Version 1)
Quarter: 2019Q2

REPORT INFORMATION
  Report Type: Other
  Country: GB (occurrence: GB)
  Receive Date: 20190401
  Receipt Date: 20190401
  Transmission Date: 20190711
  Serious: No
  Sender: FDA-Public Use
  Company Number: GB-LUPIN PHARMACEUTICALS INC.-2018-05081

PATIENT

DRUGS (1)
  1. SERTRALINE HYDROCHLORIDE TABLETS [Suspect]
     Active Substance: SERTRALINE HYDROCHLORIDE
     Indication: PRODUCT USED FOR UNKNOWN INDICATION
     Dosage: 1 DF, ONCE A DAY (100 MG)
     Route: 048
     Dates: start: 20180619

REACTIONS (2)
  - Erectile dysfunction [Not Recovered/Not Resolved]
  - Male orgasmic disorder [Unknown]

NARRATIVE: CASE EVENT DATE: 20180622
